FAERS Safety Report 18107505 (Version 1)
Quarter: 2020Q3

REPORT INFORMATION
  Report Type: Spontaneous
  Country: US (occurrence: US)
  Receive Date: 20200804
  Receipt Date: 20200804
  Transmission Date: 20201103
  Serious: Yes (Disabling, Other)
  Sender: FDA-Public Use
  Company Number: US-SA-2020SA198683

PATIENT

DRUGS (3)
  1. GOLD BOND ORIGINAL STRENGTH POWDER [Suspect]
     Active Substance: MENTHOL\ZINC OXIDE
     Route: 055
  2. GOLD BOND ORIGINAL STRENGTH POWDER [Suspect]
     Active Substance: MENTHOL\ZINC OXIDE
     Dosage: UNK
     Route: 050
  3. GOLD BOND ORIGINAL STRENGTH POWDER [Suspect]
     Active Substance: MENTHOL\ZINC OXIDE
     Route: 050

REACTIONS (12)
  - Chemical poisoning [Unknown]
  - Exposure to chemical pollution [Unknown]
  - Deformity [Unknown]
  - Impaired work ability [Unknown]
  - Accidental exposure to product [Unknown]
  - Pain [Unknown]
  - Economic problem [Unknown]
  - Lung neoplasm malignant [Unknown]
  - Physical disability [Unknown]
  - Anxiety [Unknown]
  - Occupational exposure to product [Unknown]
  - General physical health deterioration [Unknown]

NARRATIVE: CASE EVENT DATE: 1970
